FAERS Safety Report 9156280 (Version 1)
Quarter: 2013Q1

REPORT INFORMATION
  Report Type: Report from Study
  Country: BE (occurrence: BE)
  Receive Date: 20130311
  Receipt Date: 20130311
  Transmission Date: 20140127
  Serious: Yes (Other)
  Sender: FDA-Public Use
  Company Number: BE-BRISTOL-MYERS SQUIBB COMPANY-17157850

PATIENT
  Age: 70 Year
  Sex: Male

DRUGS (4)
  1. APIXABAN [Suspect]
     Indication: THROMBOSIS PROPHYLAXIS
     Dosage: NO OF COURSES:2;14SEP10-01JUN11?01JUN11-23AUG11.
     Route: 048
     Dates: start: 20100914, end: 20110823
  2. BISOPROLOL [Concomitant]
     Dates: start: 20081007
  3. IRBESARTAN [Concomitant]
     Dates: start: 20081007
  4. FLECAINIDE [Concomitant]
     Dates: start: 20081007

REACTIONS (2)
  - Haematuria [Recovered/Resolved]
  - Prostate infection [Recovered/Resolved]
